FAERS Safety Report 7548376-0 (Version None)
Quarter: 2011Q2

REPORT INFORMATION
  Report Type: 
  Country: None (occurrence: None)
  Receive Date: 20110608
  Receipt Date: 20110512
  Transmission Date: 20111010
  Serious: Yes (Hospitalization, Disabling)
  Sender: FDA-Public Use
  Company Number: AUR-APL-2011-01709

PATIENT
  Age: 5 Year
  Sex: Male

DRUGS (3)
  1. CLOBAZAM [Suspect]
  2. LAMOTRIGINE [Suspect]
  3. VALPROATE SODIUM [Suspect]

REACTIONS (18)
  - ISCHAEMIA [None]
  - CEREBRAL ATROPHY [None]
  - HYPOXIA [None]
  - APHASIA [None]
  - MOTOR DYSFUNCTION [None]
  - HYPOXIC-ISCHAEMIC ENCEPHALOPATHY [None]
  - HYPOTONIA [None]
  - LEARNING DISABILITY [None]
  - DEVELOPMENTAL DELAY [None]
  - LOWER RESPIRATORY TRACT INFECTION [None]
  - DYSTONIA [None]
  - MOVEMENT DISORDER [None]
  - PYREXIA [None]
  - COGNITIVE DISORDER [None]
  - STATUS EPILEPTICUS [None]
  - AKINESIA [None]
  - BRAIN OEDEMA [None]
  - PNEUMONIA MYCOPLASMAL [None]
